FAERS Safety Report 10534464 (Version 2)
Quarter: 2014Q4

REPORT INFORMATION
  Report Type: Report from Study
  Country: ZA (occurrence: ZA)
  Receive Date: 20141022
  Receipt Date: 20141022
  Transmission Date: 20150529
  Serious: Yes (Hospitalization)
  Sender: FDA-Public Use
  Company Number: ZA-US-EMD SERONO, INC.-7326773

PATIENT
  Sex: Male

DRUGS (4)
  1. OMEGA 3 [Concomitant]
     Active Substance: OMEGA-3 FATTY ACIDS
     Indication: PRODUCT USED FOR UNKNOWN INDICATION
  2. ESCITALOPRAM [Concomitant]
     Active Substance: ESCITALOPRAM OXALATE
     Indication: PRODUCT USED FOR UNKNOWN INDICATION
  3. VITAMIN D3 [Concomitant]
     Active Substance: CHOLECALCIFEROL
     Indication: PRODUCT USED FOR UNKNOWN INDICATION
  4. REBIF [Suspect]
     Active Substance: INTERFERON BETA-1A
     Indication: MULTIPLE SCLEROSIS

REACTIONS (16)
  - Haemochromatosis [Unknown]
  - Rash generalised [Unknown]
  - Blood iron decreased [Unknown]
  - Tearfulness [Unknown]
  - Anxiety [Unknown]
  - Alanine aminotransferase increased [Unknown]
  - Injection site erythema [Unknown]
  - Transferrin saturation decreased [Unknown]
  - Heart rate increased [Unknown]
  - Gamma-glutamyltransferase increased [Unknown]
  - Rash pruritic [Unknown]
  - Serum ferritin increased [Unknown]
  - Skin mass [Unknown]
  - Rash erythematous [Unknown]
  - Depressed mood [Unknown]
  - Nodule [Unknown]
